FAERS Safety Report 8768152 (Version 1)
Quarter: 2012Q4

REPORT INFORMATION
  Report Type: 
  Country: CA (occurrence: CA)
  Receive Date: 20120904
  Receipt Date: 20120904
  Transmission Date: 20130627
  Serious: Yes (Hospitalization)
  Sender: FDA-Public Use
  Company Number: CA-009507513-1208CAN002686

PATIENT

DRUGS (1)
  1. SAPHRIS [Suspect]
     Indication: BIPOLAR DISORDER
     Dosage: 10 mg, bid
     Route: 060
     Dates: start: 201207

REACTIONS (1)
  - Urinary retention [Recovered/Resolved]
